FAERS Safety Report 5297370-1 (Version None)
Quarter: 2007Q2

REPORT INFORMATION
  Report Type: 
  Country: None (occurrence: None)
  Receive Date: 20070416
  Receipt Date: 20070402
  Transmission Date: 20071010
  Serious: Yes (Hospitalization, Other)
  Sender: FDA-Public Use
  Company Number: PHEH2007US03957

PATIENT
  Age: 63 Year
  Sex: Female

DRUGS (1)
  1. ZELNORM [Suspect]
     Indication: IRRITABLE BOWEL SYNDROME
     Dosage: 6 MG, BID
     Dates: start: 20030101, end: 20070201

REACTIONS (5)
  - CEREBROVASCULAR ACCIDENT [None]
  - FACE OEDEMA [None]
  - FACIAL PALSY [None]
  - HEADACHE [None]
  - LOSS OF CONSCIOUSNESS [None]
